FAERS Safety Report 4989318-1 (Version None)
Quarter: 2006Q2

REPORT INFORMATION
  Report Type: 
  Country: None (occurrence: None)
  Receive Date: 20060426
  Receipt Date: 20060418
  Transmission Date: 20061013
  Serious: Yes (Death, Life-Threatening, Hospitalization)
  Sender: FDA-Public Use
  Company Number: 430001N06JPN

PATIENT
  Age: 64 Year
  Sex: Male

DRUGS (14)
  1. NOVANTRONE [Suspect]
     Indication: ACUTE MYELOID LEUKAEMIA
     Dosage: 8 MG, 1 IN 1 DAYS, INTRAVENOUS
     Route: 042
     Dates: start: 20060104, end: 20060104
  2. GEMTUZUMAB OZOGAMICIN [Suspect]
     Indication: ACUTE MYELOID LEUKAEMIA
     Dosage: 9 MG/M2, 1 IN 1 DAYS, INTRAVENOUS
     Route: 042
     Dates: start: 20060109, end: 20060109
  3. ETOPOSIDE [Suspect]
     Indication: ACUTE MYELOID LEUKAEMIA
     Dosage: 80 MG, 1 IN 1 DAYS, INTRAVENOUS
     Route: 042
     Dates: start: 20060104, end: 20060105
  4. METHYLPREDNISOLONE SODIUM SUCCINATE [Concomitant]
  5. FAMOTIDINE [Concomitant]
  6. IRSOGLADINE MALEATE [Concomitant]
  7. POLYMYXIN B SULFATE [Concomitant]
  8. MAGNESIUM OXIDE [Concomitant]
  9. ITRACONAZOLE [Concomitant]
  10. URSODEOXYCHOLIC ACID [Concomitant]
  11. TAMSULOSIN HCL [Concomitant]
  12. LOXOPROFEN SODIUM [Concomitant]
  13. BACTRIM [Concomitant]
  14. CIPROFLOXACIN HYDROCHLORIDE [Concomitant]

REACTIONS (10)
  - ABDOMINAL DISTENSION [None]
  - DRUG INEFFECTIVE [None]
  - EPISTAXIS [None]
  - FEBRILE NEUTROPENIA [None]
  - MALAISE [None]
  - OEDEMA PERIPHERAL [None]
  - RESPIRATORY FAILURE [None]
  - RESTLESSNESS [None]
  - VENOOCCLUSIVE LIVER DISEASE [None]
  - WEIGHT INCREASED [None]
